FAERS Safety Report 24029872 (Version 1)
Quarter: 2024Q2

REPORT INFORMATION
  Report Type: Spontaneous
  Country: US (occurrence: US)
  Receive Date: 20240628
  Receipt Date: 20240628
  Transmission Date: 20240715
  Serious: No
  Sender: FDA-Public Use
  Company Number: US-BAUSCH-BL-2023-011910

PATIENT
  Sex: Female

DRUGS (2)
  1. TRULANCE [Suspect]
     Active Substance: PLECANATIDE
     Indication: Product used for unknown indication
     Dosage: 1 TABLET ONCE DAILY
     Route: 065
  2. TRULANCE [Suspect]
     Active Substance: PLECANATIDE
     Dosage: TOOK 1 TABLET TWICE DAILY ON TWO OR THREE OCCASIONS
     Route: 065

REACTIONS (2)
  - Extra dose administered [Unknown]
  - Therapeutic product effect decreased [Unknown]
